FAERS Safety Report 10407297 (Version 2)
Quarter: 2014Q4

REPORT INFORMATION
  Report Type: Spontaneous
  Country: US (occurrence: US)
  Receive Date: 20140825
  Receipt Date: 20141216
  Transmission Date: 20150528
  Serious: Yes (Other)
  Sender: FDA-Public Use
  Company Number: US-ELI_LILLY_AND_COMPANY-US201408005350

PATIENT
  Sex: Female

DRUGS (1)
  1. CYMBALTA [Suspect]
     Active Substance: DULOXETINE HYDROCHLORIDE
     Indication: BACK PAIN
     Dosage: UNK, UNK
     Route: 065
     Dates: start: 20121031

REACTIONS (13)
  - Nightmare [Unknown]
  - Nausea [Unknown]
  - Hallucination [Unknown]
  - Insomnia [Unknown]
  - Hypertension [Unknown]
  - Hostility [Unknown]
  - Weight increased [Unknown]
  - Headache [Unknown]
  - Gastrointestinal disorder [Unknown]
  - Vision blurred [Unknown]
  - Drug withdrawal syndrome [Unknown]
  - Tremor [Unknown]
  - Hyperhidrosis [Unknown]
